FAERS Safety Report 18278340 (Version 1)
Quarter: 2020Q3

REPORT INFORMATION
  Report Type: Spontaneous
  Country: CH (occurrence: CH)
  Receive Date: 20200917
  Receipt Date: 20200917
  Transmission Date: 20201103
  Serious: Yes (Disabling)
  Sender: FDA-Public Use
  Company Number: CH-PFIZER INC-2020354714

PATIENT
  Age: 51 Year
  Sex: Male

DRUGS (3)
  1. XELJANZ [Suspect]
     Active Substance: TOFACITINIB CITRATE
     Indication: RHEUMATOID ARTHRITIS
     Dosage: 5 MG, TWICE A DAY
     Route: 048
     Dates: start: 201811
  2. XELJANZ [Suspect]
     Active Substance: TOFACITINIB CITRATE
     Indication: SPONDYLITIS
  3. XELJANZ [Suspect]
     Active Substance: TOFACITINIB CITRATE
     Indication: SERONEGATIVE ARTHRITIS

REACTIONS (1)
  - Peripheral sensory neuropathy [Not Recovered/Not Resolved]

NARRATIVE: CASE EVENT DATE: 2019
